FAERS Safety Report 10062551 (Version 1)
Quarter: 2014Q1

REPORT INFORMATION
  Report Type: Spontaneous
  Country: US (occurrence: None)
  Receive Date: 20140313
  Receipt Date: 20140313
  Transmission Date: 20141002
  Serious: Yes (Other)
  Sender: FDA-Public Use
  Company Number: 1000052366

PATIENT
  Sex: Female

DRUGS (6)
  1. DALIRESP (ROFLUMILAST) (500 MICROGRAM, TABLETS) [Suspect]
     Route: 048
  2. ATENOLOL (ATENOLOL) (ATENOLOL) [Concomitant]
  3. TRAZADONE (TRAZADONE) (TRAZADONE) [Concomitant]
  4. RANITIDINE (RANITIDINE) (RANITIDINE) [Concomitant]
  5. ALPRAZOLAM (ALPRAZOLAM) (ALPRAZOLAM) [Concomitant]
  6. TUDORZA PRESSAIR [Suspect]

REACTIONS (1)
  - Abdominal discomfort [None]
